FAERS Safety Report 24559149 (Version 1)
Quarter: 2024Q4

REPORT INFORMATION
  Report Type: Spontaneous
  Country: JP (occurrence: JP)
  Receive Date: 20241029
  Receipt Date: 20241029
  Transmission Date: 20250115
  Serious: Yes (Hospitalization)
  Sender: SANDOZ
  Company Number: JP-asahikaseip-2024-AER-05914

PATIENT
  Age: 87 Year
  Sex: Female

DRUGS (1)
  1. RECLAST [Suspect]
     Active Substance: ZOLEDRONIC ACID
     Indication: Osteoporosis
     Dosage: 5 MG
     Route: 041

REACTIONS (6)
  - Tubulointerstitial nephritis [Unknown]
  - Hypercalcaemia [Unknown]
  - Fanconi syndrome [Unknown]
  - Dehydration [Unknown]
  - Malaise [Unknown]
  - Decreased appetite [Unknown]
